FAERS Safety Report 7929005-0 (Version None)
Quarter: 2011Q4

REPORT INFORMATION
  Report Type: 
  Country: None (occurrence: None)
  Receive Date: 20111118
  Receipt Date: 20111111
  Transmission Date: 20120403
  Serious: Yes (Hospitalization, Other)
  Sender: FDA-Public Use
  Company Number: US-AMGEN-USASP2011058520

PATIENT
  Age: 63 Year
  Sex: Female

DRUGS (2)
  1. ENBREL [Suspect]
     Indication: RHEUMATOID ARTHRITIS
     Dosage: 50 MG, Q2WK
     Dates: start: 20090101
  2. METHOTREXATE [Concomitant]
     Dosage: UNK

REACTIONS (8)
  - INJECTION SITE REACTION [None]
  - WOUND CLOSURE [None]
  - INFECTION [None]
  - PNEUMONIA [None]
  - CONTUSION [None]
  - INJECTION SITE PAIN [None]
  - POST PROCEDURAL INFECTION [None]
  - BREAST CANCER [None]
